FAERS Safety Report 19007259 (Version 1)
Quarter: 2021Q1

REPORT INFORMATION
  Report Type: Spontaneous
  Country: US (occurrence: US)
  Receive Date: 20210315
  Receipt Date: 20210315
  Transmission Date: 20210420
  Serious: No
  Sender: FDA-Public Use
  Company Number: None

PATIENT
  Age: 70 Year
  Sex: Male
  Weight: 72.9 kg

DRUGS (1)
  1. RITUXAN [Suspect]
     Active Substance: RITUXIMAB
     Indication: LYMPHOMA
     Dosage: OTHER FREQUENCY:WEEKLY;?
     Route: 041
     Dates: start: 20210129

REACTIONS (5)
  - Pruritus [None]
  - Erythema [None]
  - Urticaria [None]
  - Infusion related reaction [None]
  - Nasal congestion [None]

NARRATIVE: CASE EVENT DATE: 20210129
